FAERS Safety Report 8429647 (Version 5)
Quarter: 2012Q4

REPORT INFORMATION
  Report Type: Spontaneous
  Country: AT (occurrence: None)
  Receive Date: 20120203
  Receipt Date: 20120821
  Transmission Date: 20130627
  Serious: Yes (Hospitalization)
  Sender: FDA-Public Use
  Company Number: 2012030909

PATIENT
  Age: 31 Year
  Sex: Female

DRUGS (7)
  1. PRIVIGEN [Suspect]
     Indication: CHRONIC INFLAMMATORY DEMYELINATING POLYRADICULONEUROPATHY
     Dosage: 100 MG/ML
     Route: 042
     Dates: start: 20111123
  2. PRIVIGEN [Suspect]
     Indication: CHRONIC INFLAMMATORY DEMYELINATING POLYRADICULONEUROPATHY
     Dosage: 100 mg/mg, Intravenous (not otherwise specified)
     Route: 042
     Dates: start: 20111123
  3. PRIVIGEN [Suspect]
     Indication: CHRONIC INFLAMMATORY DEMYELINATING POLYRADICULONEUROPATHY
  4. PRIVIGEN [Suspect]
     Indication: CHRONIC INFLAMMATORY DEMYELINATING POLYRADICULONEUROPATHY
  5. NEXIUM [Concomitant]
  6. SUCRALFAT (SUCRALFATE) [Concomitant]
  7. CARVEDILOL [Concomitant]

REACTIONS (5)
  - Meningitis aseptic [None]
  - Myalgia [None]
  - Off label use [None]
  - Off label use [None]
  - Headache [None]
